FAERS Safety Report 4350635-X (Version None)
Quarter: 2004Q2

REPORT INFORMATION
  Report Type: 
  Country: None (occurrence: None)
  Receive Date: 20040427
  Receipt Date: 20040416
  Transmission Date: 20050107
  Serious: Yes (Other)
  Sender: FDA-Public Use
  Company Number: 200410414BVD

PATIENT
  Age: 68 Year
  Sex: Female
  Weight: 68 kg

DRUGS (4)
  1. ADALAT [Suspect]
     Indication: HYPERTENSION
     Dosage: 20 MG, TOTAL DAILY, ORAL
     Route: 048
     Dates: start: 20040321, end: 20040323
  2. ZOCOR [Concomitant]
  3. TIKLYD [Concomitant]
  4. UNAT COR [Concomitant]

REACTIONS (12)
  - DISEASE PROGRESSION [None]
  - ERYTHEMA [None]
  - ERYTHROMELALGIA [None]
  - GASTROINTESTINAL DISORDER [None]
  - GENERAL PHYSICAL HEALTH DETERIORATION [None]
  - HEADACHE [None]
  - JAUNDICE [None]
  - LEUKOENCEPHALOMYELITIS [None]
  - PALPITATIONS [None]
  - PARAESTHESIA [None]
  - RASH [None]
  - URINARY RETENTION [None]
